FAERS Safety Report 17251641 (Version 2)
Quarter: 2020Q1

REPORT INFORMATION
  Report Type: Spontaneous
  Country: US (occurrence: US)
  Receive Date: 20200109
  Receipt Date: 20200207
  Transmission Date: 20200409
  Serious: No
  Sender: FDA-Public Use
  Company Number: US-JNJFOC-20200104082

PATIENT
  Sex: Male
  Weight: 72.64 kg

DRUGS (1)
  1. RISPERDAL CONSTA [Suspect]
     Active Substance: RISPERIDONE
     Indication: SCHIZOPHRENIA
     Dosage: DEVICE LOT: C207, EXPIRATION 01/MAY/2024
     Route: 030

REACTIONS (2)
  - Device malfunction [Unknown]
  - Weight fluctuation [Unknown]
